FAERS Safety Report 16243480 (Version 5)
Quarter: 2020Q1

REPORT INFORMATION
  Report Type: Spontaneous
  Country: CA (occurrence: CA)
  Receive Date: 20190426
  Receipt Date: 20200207
  Transmission Date: 20200409
  Serious: Yes (Hospitalization, Other)
  Sender: FDA-Public Use
  Company Number: CA-PFIZER INC-2018472104

PATIENT
  Age: 81 Year
  Sex: Male

DRUGS (3)
  1. XELJANZ [Suspect]
     Active Substance: TOFACITINIB CITRATE
     Indication: PSORIATIC ARTHROPATHY
     Dosage: 5 MG, 1X/DAY
     Route: 048
     Dates: start: 20181102, end: 20190121
  2. XELJANZ [Suspect]
     Active Substance: TOFACITINIB CITRATE
     Dosage: 5 MG, 2X/DAY
     Route: 048
     Dates: start: 20190121
  3. IRON [Concomitant]
     Active Substance: IRON
     Dosage: ^REGULAR^
     Route: 042

REACTIONS (4)
  - Therapeutic product effect incomplete [Recovering/Resolving]
  - Angina pectoris [Recovering/Resolving]
  - Sensitivity to weather change [Not Recovered/Not Resolved]
  - Anaemia [Unknown]
